FAERS Safety Report 19710534 (Version 3)
Quarter: 2023Q4

REPORT INFORMATION
  Report Type: Spontaneous
  Country: PA (occurrence: PA)
  Receive Date: 20210817
  Receipt Date: 20231006
  Transmission Date: 20240109
  Serious: Yes (Other)
  Sender: FDA-Public Use
  Company Number: PA-BAYER-2021-194836

PATIENT
  Age: 21 Year
  Sex: Female

DRUGS (1)
  1. ULTRAVIST [Suspect]
     Active Substance: IOPROMIDE
     Indication: Scan with contrast
     Dosage: UNK UNK, ONCE
     Route: 042

REACTIONS (2)
  - Choking [None]
  - Vomiting [None]

NARRATIVE: CASE EVENT DATE: 20210715
